FAERS Safety Report 7501465-9 (Version None)
Quarter: 2011Q2

REPORT INFORMATION
  Report Type: 
  Country: None (occurrence: None)
  Receive Date: 20110524
  Receipt Date: 20090817
  Transmission Date: 20111010
  Serious: Yes (Other)
  Sender: FDA-Public Use
  Company Number: US-BAYER-200929972NA

PATIENT
  Age: 45 Year
  Sex: Female
  Weight: 74.2 kg

DRUGS (20)
  1. HEPARIN [Concomitant]
     Dosage: UNK
     Route: 042
     Dates: start: 20020507
  2. RED BLOOD CELLS [Concomitant]
     Dosage: 6 U, UNK
     Route: 042
     Dates: start: 20020507
  3. NEURONTIN [Concomitant]
     Dosage: 300 MG, BID
  4. POTASSIUM CHLORIDE [Concomitant]
     Dosage: 120 MED DAILY
  5. LORTAB [Concomitant]
     Dosage: 7.5 MG, TID
  6. ATIVAN [Concomitant]
     Dosage: 0.5 MG, BID
  7. DEMADEX [Concomitant]
     Dosage: 20 MG, BID
  8. CIPRO [Concomitant]
     Route: 042
  9. ALBUMIN (HUMAN) [Concomitant]
     Dosage: UNK
     Route: 042
     Dates: start: 20020507
  10. OXYCONTIN [Concomitant]
     Dosage: 20 MG, BID
  11. KEFZOL [Concomitant]
     Dosage: UNK
     Route: 042
     Dates: start: 20020507
  12. NITROGLYCERIN [Concomitant]
     Dosage: UNK
     Route: 042
     Dates: start: 20020507
  13. TRASYLOL [Suspect]
     Indication: AORTIC ANEURYSM REPAIR
     Dosage: 100 ML, (LOADING DOSE)
     Route: 042
     Dates: start: 20020517, end: 20020517
  14. TRASYLOL [Suspect]
     Indication: AORTIC VALVE REPAIR
     Dosage: 25 ML/HR (INFUSION)
     Route: 042
     Dates: start: 20020517, end: 20020517
  15. NORVASC [Concomitant]
     Dosage: 10 MG, BID
  16. AMIODARONE HCL [Concomitant]
     Dosage: UNK
     Route: 042
     Dates: start: 20020507
  17. TOPROL-XL [Concomitant]
     Dosage: 200 MG, QD
  18. CALCIUM CHLORIDE [Concomitant]
     Dosage: UNK
     Route: 042
     Dates: start: 20020507
  19. FENTANYL [Concomitant]
     Dosage: UNK
     Route: 042
     Dates: start: 20020507
  20. VERSED [Concomitant]
     Dosage: UNK
     Route: 042
     Dates: start: 20020507

REACTIONS (12)
  - ANXIETY [None]
  - PAIN [None]
  - INJURY [None]
  - MULTI-ORGAN FAILURE [None]
  - RENAL IMPAIRMENT [None]
  - FEAR [None]
  - RENAL FAILURE [None]
  - RENAL INJURY [None]
  - STRESS [None]
  - ANHEDONIA [None]
  - UNEVALUABLE EVENT [None]
  - EMOTIONAL DISTRESS [None]
